FAERS Safety Report 11361166 (Version 3)
Quarter: 2025Q4

REPORT INFORMATION
  Report Type: Spontaneous
  Country: EU (occurrence: EU)
  Receive Date: 20150810
  Receipt Date: 20251120
  Transmission Date: 20260118
  Serious: Yes (Hospitalization, Other)
  Sender: BRISTOL-MYERS SQUIBB COMPANY
  Company Number: EU-BRISTOL-MYERS SQUIBB COMPANY-BMS-2015-052054

PATIENT
  Age: 56 Year
  Sex: Female

DRUGS (1)
  1. IPILIMUMAB [Suspect]
     Active Substance: IPILIMUMAB
     Indication: Malignant melanoma
     Dosage: FOR A TOTAL OF FOUR DOSES
     Dates: start: 201011

REACTIONS (2)
  - Colitis [Recovered/Resolved]
  - Pyoderma gangrenosum [Recovered/Resolved]
